FAERS Safety Report 4634947-8 (Version None)
Quarter: 2005Q2

REPORT INFORMATION
  Report Type: 
  Country: None (occurrence: None)
  Receive Date: 20050414
  Receipt Date: 20050401
  Transmission Date: 20051028
  Serious: Yes (Other)
  Sender: FDA-Public Use
  Company Number: PHBS2005JP04568

PATIENT

DRUGS (2)
  1. RITALIN [Suspect]
     Dosage: 10 MG/D
     Route: 048
     Dates: start: 20050330, end: 20050331
  2. PAXIL [Suspect]
     Dosage: 10 MG/D
     Route: 048
     Dates: start: 20050330, end: 20050331

REACTIONS (1)
  - DERMATITIS BULLOUS [None]
